FAERS Safety Report 4587040-7 (Version None)
Quarter: 2005Q1

REPORT INFORMATION
  Report Type: 
  Country: None (occurrence: None)
  Receive Date: 20050218
  Receipt Date: 20040102
  Transmission Date: 20050727
  Serious: Yes (Death, Other)
  Sender: FDA-Public Use
  Company Number: PHFR2004GB00456

PATIENT
  Age: 54 Year
  Sex: Male

DRUGS (2)
  1. HYOSCINE HYDROBROMIDE [Suspect]
     Indication: SALIVARY HYPERSECRETION
     Dosage: 900MG/DAY
     Route: 048
     Dates: start: 20010101, end: 20040126
  2. CLOZARIL [Suspect]
     Indication: SCHIZOPHRENIA
     Dosage: UNK, UNK
     Route: 048
     Dates: start: 19971007, end: 20040126

REACTIONS (10)
  - BLOOD PRESSURE INCREASED [None]
  - BUNDLE BRANCH BLOCK LEFT [None]
  - CARDIAC ARREST [None]
  - CIRCULATORY COLLAPSE [None]
  - DIZZINESS [None]
  - ELECTROCARDIOGRAM ABNORMAL [None]
  - HEART RATE IRREGULAR [None]
  - MYOCARDIAL INFARCTION [None]
  - OVERWEIGHT [None]
  - SINUS TACHYCARDIA [None]
